FAERS Safety Report 5598014-1 (Version None)
Quarter: 2008Q1

REPORT INFORMATION
  Report Type: 
  Country: None (occurrence: None)
  Receive Date: 20080122
  Receipt Date: 20080110
  Transmission Date: 20080703
  Serious: Yes (Hospitalization)
  Sender: FDA-Public Use
  Company Number: US-JNJFOC-20080102855

PATIENT
  Sex: Female

DRUGS (4)
  1. INVEGA [Suspect]
     Indication: SCHIZOPHRENIA
     Route: 048
  2. RISPERDAL [Suspect]
     Indication: SCHIZOPHRENIA
  3. DEPAKOTE [Concomitant]
     Indication: DRUG USE FOR UNKNOWN INDICATION
  4. SEROQUEL [Concomitant]
     Indication: SCHIZOPHRENIA

REACTIONS (1)
  - SCHIZOPHRENIA [None]
